FAERS Safety Report 9165387 (Version 1)
Quarter: 2013Q1

REPORT INFORMATION
  Report Type: Spontaneous
  Country: US (occurrence: US)
  Receive Date: 20130315
  Receipt Date: 20130315
  Transmission Date: 20140127
  Serious: Yes (Disabling)
  Sender: FDA-Public Use
  Company Number: US-PFIZER INC-2012265921

PATIENT
  Age: 50 Year
  Sex: Female
  Weight: 83 kg

DRUGS (22)
  1. LYRICA [Suspect]
     Indication: FIBROMYALGIA
     Dosage: 150 MG, 2X/DAY
     Route: 048
  2. LYRICA [Suspect]
     Indication: NEURALGIA
  3. LYRICA [Suspect]
     Indication: MIGRAINE WITH AURA
  4. LYRICA [Suspect]
     Indication: HEADACHE
  5. LYRICA [Suspect]
     Indication: MERALGIA PARAESTHETICA
  6. BUTRANS [Concomitant]
     Indication: PAIN
     Dosage: 20 UG, WEEKLY
  7. CENSTIN [Concomitant]
     Indication: HORMONE REPLACEMENT THERAPY
     Dosage: 1 MG, 1X/DAY
  8. OMEGA 3 [Concomitant]
     Dosage: 3000 MG, 1X/DAY
  9. HUMIRA [Concomitant]
     Dosage: 40 MG, (EVERY OTHER WEEK)
  10. LEFLUNOMIDE [Concomitant]
     Indication: RHEUMATOID ARTHRITIS
     Dosage: 20 MG, 1X/DAY
  11. PROBIOTICS [Concomitant]
     Dosage: UNK, 1X/DAY
  12. PRILOSEC [Concomitant]
     Indication: GASTROOESOPHAGEAL REFLUX DISEASE
     Dosage: 20 MG, (ONE HOUR BEFORE BREAKFAST)
  13. ZOFRAN [Concomitant]
     Indication: NAUSEA
     Dosage: 8 MG, (ONE TABLET TWICE DAILY) AS NEEDED
  14. THERACAL [Concomitant]
     Indication: BONE LOSS
     Dosage: UNK
  15. VERAPAMIL [Concomitant]
     Indication: MIGRAINE
     Dosage: 240 SL, 1X/DAY
  16. VERAPAMIL [Concomitant]
     Indication: MIGRAINE WITH AURA
  17. VERAPAMIL [Concomitant]
     Indication: TENSION HEADACHE
  18. VITAMIN B-12 [Concomitant]
     Indication: HYPOVITAMINOSIS
     Dosage: 1000 MG, 1X/DAY
  19. VITAMIN C [Concomitant]
     Dosage: 1000 MG, 1X/DAY
  20. VITAMIN D3 [Concomitant]
     Dosage: 2000 IU, 1X/DAY (WITH A MEAL)
  21. ZANAFLEX [Concomitant]
     Indication: MUSCLE TIGHTNESS
     Dosage: 8 MG, 1X/DAY (AT BEDTIME)
  22. DHEA [Concomitant]
     Dosage: 25 MG, 2X/DAY

REACTIONS (4)
  - Rheumatoid arthritis [Unknown]
  - Back disorder [Unknown]
  - Musculoskeletal discomfort [Unknown]
  - Drug ineffective [Unknown]
